FAERS Safety Report 10723910 (Version 1)
Quarter: 2015Q1

REPORT INFORMATION
  Report Type: Spontaneous
  Country: AU (occurrence: AU)
  Receive Date: 20150120
  Receipt Date: 20150120
  Transmission Date: 20150721
  Serious: Yes (Hospitalization, Other)
  Sender: FDA-Public Use
  Company Number: AU-APOTEX-2015AP005188

PATIENT
  Age: 59 Year
  Sex: Male

DRUGS (4)
  1. RIVAROXABAN [Concomitant]
     Active Substance: RIVAROXABAN
     Indication: PROPHYLAXIS
     Dosage: 20 MG, QD
  2. METOPROLOL [Suspect]
     Active Substance: METOPROLOL
     Indication: ELECTROCARDIOGRAM ABNORMAL
     Dosage: 25 MG, BID
  3. SOTALOL. [Suspect]
     Active Substance: SOTALOL
     Indication: ELECTROCARDIOGRAM ABNORMAL
     Dosage: 40 MG, BID
  4. FLECAINIDE [Suspect]
     Active Substance: FLECAINIDE
     Indication: PRODUCT USED FOR UNKNOWN INDICATION

REACTIONS (4)
  - Conduction disorder [Recovered/Resolved]
  - Bradycardia [Recovered/Resolved]
  - Cardiogenic shock [Recovered/Resolved]
  - Atrial fibrillation [Recovered/Resolved]
